FAERS Safety Report 6188888-8 (Version None)
Quarter: 2009Q2

REPORT INFORMATION
  Report Type: 
  Country: None (occurrence: None)
  Receive Date: 20090513
  Receipt Date: 20090504
  Transmission Date: 20091009
  Serious: Yes (Hospitalization)
  Sender: FDA-Public Use
  Company Number: PHHY2009FR17815

PATIENT
  Age: 76 Year
  Sex: Female

DRUGS (6)
  1. CIBACEN [Suspect]
     Dosage: 10 MG, BID
     Route: 048
  2. VASTAREL ^BIOPHARMA^ [Suspect]
     Dosage: 35 MG, BID
     Route: 048
  3. OLMETEC [Suspect]
     Dosage: 20 MG, QD
     Route: 048
  4. LOVENOX [Concomitant]
  5. HEXAQUINE [Concomitant]
  6. DAFALGAN [Concomitant]
     Dosage: 1 G

REACTIONS (2)
  - FALL [None]
  - HUMERUS FRACTURE [None]
